FAERS Safety Report 25652163 (Version 2)
Quarter: 2025Q3

REPORT INFORMATION
  Report Type: Report from Study
  Country: CL (occurrence: CL)
  Receive Date: 20250806
  Receipt Date: 20250807
  Transmission Date: 20251021
  Serious: No
  Sender: JOHNSON AND JOHNSON
  Company Number: CL-JNJFOC-20250736030

PATIENT
  Age: 42 Year
  Sex: Male

DRUGS (1)
  1. SIMPONI [Suspect]
     Active Substance: GOLIMUMAB
     Indication: Rheumatoid arthritis
     Route: 058
     Dates: start: 20240318

REACTIONS (4)
  - Product administration error [Unknown]
  - Incorrect dose administered [Unknown]
  - Device leakage [Unknown]
  - Needle issue [Unknown]
